FAERS Safety Report 7552345-4 (Version None)
Quarter: 2011Q2

REPORT INFORMATION
  Report Type: 
  Country: None (occurrence: None)
  Receive Date: 20110616
  Receipt Date: 20061229
  Transmission Date: 20111010
  Serious: Yes (Death)
  Sender: FDA-Public Use
  Company Number: PHHO2005CA13690

PATIENT
  Sex: Female
  Weight: 47 kg

DRUGS (1)
  1. CLOZAPINE [Suspect]
     Indication: SCHIZOPHRENIA, PARANOID TYPE
     Route: 048
     Dates: start: 19941113

REACTIONS (9)
  - HEART RATE INCREASED [None]
  - WHITE BLOOD CELL COUNT INCREASED [None]
  - DIFFERENTIAL WHITE BLOOD CELL COUNT ABNORMAL [None]
  - MULTI-ORGAN FAILURE [None]
  - LABORATORY TEST ABNORMAL [None]
  - HYPOXIA [None]
  - DYSPNOEA [None]
  - COAGULOPATHY [None]
  - COAGULATION TEST ABNORMAL [None]
